FAERS Safety Report 5190067-8 (Version None)
Quarter: 2006Q4

REPORT INFORMATION
  Report Type: 
  Country: None (occurrence: None)
  Receive Date: 20061222
  Receipt Date: 20061214
  Transmission Date: 20070319
  Serious: Yes (Hospitalization)
  Sender: FDA-Public Use
  Company Number: SE-JNJFOC-20061204519

PATIENT
  Age: 58 Year
  Sex: Female

DRUGS (5)
  1. REMICADE [Suspect]
     Indication: RHEUMATOID ARTHRITIS
     Route: 042
  2. FOLACIN [Concomitant]
     Route: 065
  3. METHOTREXATE [Concomitant]
     Route: 065
  4. ORUDIS RETARD [Concomitant]
     Route: 065
  5. CALCICHEW-D3 [Concomitant]
     Route: 065

REACTIONS (4)
  - INFECTION [None]
  - MALAISE [None]
  - PYREXIA [None]
  - RENAL PAIN [None]
